FAERS Safety Report 9167498 (Version 1)
Quarter: 2013Q1

REPORT INFORMATION
  Report Type: Spontaneous
  Country: US (occurrence: US)
  Receive Date: 20130318
  Receipt Date: 20130318
  Transmission Date: 20140127
  Serious: Yes (Hospitalization)
  Sender: FDA-Public Use
  Company Number: US-BAYER-2013-030840

PATIENT
  Age: 15 Year
  Sex: Female
  Weight: 54.88 kg

DRUGS (17)
  1. YASMIN [Suspect]
     Indication: CONTRACEPTION
     Dosage: UNK,1 TAB DAILY
     Dates: start: 20110214, end: 201104
  2. LUTERA-28 [Concomitant]
  3. DRONABINOL [Concomitant]
     Dosage: 5 MG, UNK
     Route: 048
     Dates: start: 20110317
  4. NYSTATIN [Concomitant]
     Indication: CANDIDA INFECTION
     Dosage: 5 ML, QID
     Route: 048
     Dates: start: 20110317
  5. ONDANSETRON HYDROCHLORIDE [Concomitant]
     Indication: NAUSEA
     Dosage: 8 MG, BID
     Route: 048
     Dates: start: 20110317
  6. PREDNISONE [Concomitant]
     Dosage: 50 MG, BID FOR 24 DAYS
     Route: 048
     Dates: start: 20110317
  7. RANITIDINE [Concomitant]
     Indication: GASTROOESOPHAGEAL REFLUX DISEASE
     Dosage: 150 MG, BID
     Route: 048
     Dates: start: 20110317
  8. SULFAMETHOXAZOLE W/TRIMETHOPRIM [Concomitant]
     Dosage: 800 MG-160MG TAB - 1 TAB BY MOUTH TWICE DAILY (EVERY SATURDAY AND SUNDAY).
     Route: 048
     Dates: start: 20110317
  9. DOCUSATE SODIUM [Concomitant]
     Indication: CONSTIPATION
     Dosage: 100 MG, TID
     Route: 048
     Dates: start: 20110317
  10. ARA-C [Concomitant]
     Indication: ACUTE LYMPHOCYTIC LEUKAEMIA
     Dosage: UNK
     Dates: start: 20110401
  11. PEGASPARGASE [Concomitant]
     Indication: ACUTE LYMPHOCYTIC LEUKAEMIA
     Dosage: UNK
     Dates: start: 20110314
  12. OMEPRAZOLE [Concomitant]
     Dosage: UNK
     Dates: start: 20110401
  13. OXYCODONE [Concomitant]
     Dosage: UNK
     Dates: start: 20110401
  14. LUPRON [Concomitant]
     Dosage: UNK, GIVEN EVERY 4 WEEKS
     Dates: start: 20110415, end: 20111018
  15. METHOTREXAT [METHOTREXATE] [Concomitant]
  16. LEUCOVORIN [FOLINIC ACID] [Concomitant]
  17. EPINEPHRINE [Concomitant]

REACTIONS (1)
  - Deep vein thrombosis [None]
